FAERS Safety Report 20973336 (Version 5)
Quarter: 2022Q3

REPORT INFORMATION
  Report Type: Spontaneous
  Country: US (occurrence: US)
  Receive Date: 20220617
  Receipt Date: 20220926
  Transmission Date: 20221027
  Serious: No
  Sender: FDA-Public Use
  Company Number: US-CELGENE-USA-20220200747

PATIENT
  Age: 71 Year
  Sex: Male

DRUGS (2)
  1. REVLIMID [Suspect]
     Active Substance: LENALIDOMIDE
     Indication: Plasma cell myeloma
     Dosage: 25 MILLIGRAM
     Route: 048
     Dates: start: 20220106
  2. DEXAMETHASONE [Concomitant]
     Active Substance: DEXAMETHASONE
     Indication: Product used for unknown indication
     Dosage: FREQUENCY TEXT: NOT PROVIDED
     Route: 065

REACTIONS (8)
  - Insomnia [Unknown]
  - Pruritus [Recovered/Resolved]
  - Headache [Unknown]
  - Insomnia [Unknown]
  - Fatigue [Unknown]
  - Herpes zoster [Unknown]
  - Malaise [Unknown]
  - White blood cell count decreased [Unknown]

NARRATIVE: CASE EVENT DATE: 20220118
